FAERS Safety Report 21798621 (Version 1)
Quarter: 2022Q4

REPORT INFORMATION
  Report Type: Spontaneous
  Country: NL (occurrence: NL)
  Receive Date: 20221230
  Receipt Date: 20221230
  Transmission Date: 20230113
  Serious: No
  Sender: FDA-Public Use
  Company Number: NL-ALKEM LABORATORIES LIMITED-DE-ALKEM-2022-10676

PATIENT
  Age: 3 Year
  Sex: Female

DRUGS (1)
  1. SIROLIMUS [Suspect]
     Active Substance: SIROLIMUS
     Indication: Vascular malformation
     Dosage: UNK
     Route: 065

REACTIONS (6)
  - Aphthous ulcer [Unknown]
  - Upper respiratory tract infection [Unknown]
  - Tonsillitis [Unknown]
  - Hypertriglyceridaemia [Unknown]
  - Stomatitis [Unknown]
  - Viral infection [Unknown]
